FAERS Safety Report 15651483 (Version 3)
Quarter: 2018Q4

REPORT INFORMATION
  Report Type: Spontaneous
  Country: US (occurrence: US)
  Receive Date: 20181123
  Receipt Date: 20181227
  Transmission Date: 20190205
  Serious: Yes (Other)
  Sender: FDA-Public Use
  Company Number: US-SA-2018SA320916

PATIENT
  Age: 32 Year
  Sex: Male

DRUGS (1)
  1. AUBAGIO [Suspect]
     Active Substance: TERIFLUNOMIDE
     Dosage: UNK, QD
     Route: 048
     Dates: start: 201807

REACTIONS (3)
  - Haemorrhagic diathesis [Unknown]
  - Mass [Unknown]
  - Erythema [Unknown]

NARRATIVE: CASE EVENT DATE: 20181105
